FAERS Safety Report 12429625 (Version 1)
Quarter: 2016Q2

REPORT INFORMATION
  Report Type: Spontaneous
  Country: JP (occurrence: JP)
  Receive Date: 20160602
  Receipt Date: 20160602
  Transmission Date: 20160815
  Serious: Yes (Hospitalization)
  Sender: FDA-Public Use
  Company Number: JP-FERRINGPH-2016FE02455

PATIENT

DRUGS (3)
  1. CABAZITAXEL [Concomitant]
     Active Substance: CABAZITAXEL
  2. GONAX [Suspect]
     Active Substance: DEGARELIX
     Dosage: 80 MG, MONTHLY
     Route: 058
  3. GONAX [Suspect]
     Active Substance: DEGARELIX
     Indication: PRODUCT USED FOR UNKNOWN INDICATION
     Dosage: 80 MG, MONTHLY
     Route: 058

REACTIONS (2)
  - Infection [Unknown]
  - Prostatic specific antigen increased [Unknown]
